FAERS Safety Report 24998985 (Version 2)
Quarter: 2025Q2

REPORT INFORMATION
  Report Type: Spontaneous
  Country: AT (occurrence: AT)
  Receive Date: 20250222
  Receipt Date: 20250517
  Transmission Date: 20250716
  Serious: No
  Sender: SANOFI AVENTIS
  Company Number: AT-SA-2025SA050085

PATIENT
  Age: 56 Year
  Sex: Male

DRUGS (1)
  1. DUPIXENT [Suspect]
     Active Substance: DUPILUMAB
     Indication: Dermatitis atopic
     Dosage: 300 MG, QOW
     Route: 065
     Dates: start: 202409

REACTIONS (3)
  - Eczema nummular [Not Recovered/Not Resolved]
  - Skin infection [Not Recovered/Not Resolved]
  - Therapeutic response decreased [Unknown]
